FAERS Safety Report 7232029-2 (Version None)
Quarter: 2011Q1

REPORT INFORMATION
  Report Type: 
  Country: None (occurrence: None)
  Receive Date: 20110118
  Receipt Date: 20101222
  Transmission Date: 20110831
  Serious: Yes (Hospitalization)
  Sender: FDA-Public Use
  Company Number: NL-AMGEN-NLDSP2011002991

PATIENT

DRUGS (6)
  1. PARACETAMOL [Concomitant]
  2. COAPROVEL [Concomitant]
  3. PANTOZOL [Concomitant]
  4. ENBREL [Suspect]
     Indication: RHEUMATOID ARTHRITIS
     Dosage: 50 MG, WEEKLY
     Route: 058
     Dates: start: 20100701, end: 20101204
  5. METHOTREXATE SODIUM [Suspect]
     Indication: PRODUCT USED FOR UNKNOWN INDICATION
  6. FOLIC ACID [Concomitant]

REACTIONS (3)
  - FATIGUE [None]
  - MENORRHAGIA [None]
  - INJECTION SITE PAIN [None]
